FAERS Safety Report 4311697-9 (Version None)
Quarter: 2004Q1

REPORT INFORMATION
  Report Type: 
  Country: None (occurrence: None)
  Receive Date: 20040303
  Receipt Date: 20040303
  Transmission Date: 20041129
  Serious: Yes (Hospitalization)
  Sender: FDA-Public Use
  Company Number: None

PATIENT
  Age: 32 Year
  Sex: Female
  Weight: 65.5 kg

DRUGS (1)
  1. FERRLECIT [Suspect]
     Indication: ANAEMIA
     Dosage: 125 MG IV
     Route: 042
     Dates: start: 20040115

REACTIONS (4)
  - DIARRHOEA [None]
  - FLUSHING [None]
  - NAUSEA [None]
  - VOMITING [None]
